FAERS Safety Report 7920087-9 (Version None)
Quarter: 2011Q4

REPORT INFORMATION
  Report Type: 
  Country: None (occurrence: None)
  Receive Date: 20111117
  Receipt Date: 20111109
  Transmission Date: 20120403
  Serious: Yes (Other)
  Sender: FDA-Public Use
  Company Number: FR-ROCHE-1003693

PATIENT
  Age: 74 Year
  Sex: Female
  Weight: 67 kg

DRUGS (6)
  1. LISINOPRIL [Suspect]
     Indication: HYPERTENSION
     Route: 048
     Dates: end: 20111004
  2. PREVISCAN [Concomitant]
  3. ATORVASTATIN CALCIUM [Concomitant]
  4. LASIX [Suspect]
     Indication: HYPERTENSION
     Route: 048
     Dates: end: 20111004
  5. FUROSEMIDE [Concomitant]
  6. ACTEMRA [Suspect]
     Indication: RHEUMATOID ARTHRITIS
     Route: 042
     Dates: start: 20110801

REACTIONS (1)
  - RENAL FAILURE CHRONIC [None]
